FAERS Safety Report 15101366 (Version 2)
Quarter: 2018Q3

REPORT INFORMATION
  Report Type: Spontaneous
  Country: IT (occurrence: IT)
  Receive Date: 20180703
  Receipt Date: 20180706
  Transmission Date: 20181010
  Serious: Yes (Other)
  Sender: FDA-Public Use
  Company Number: IT-ASTRAZENECA-2018SE83169

PATIENT
  Age: 20081 Day
  Sex: Female

DRUGS (9)
  1. FOLINA [Concomitant]
     Active Substance: FOLIC ACID
  2. ATORVASTATIN [Concomitant]
     Active Substance: ATORVASTATIN
  3. CLOPIDOGREL [Concomitant]
     Active Substance: CLOPIDOGREL BISULFATE
  4. PANTOPRAZOLE [Concomitant]
     Active Substance: PANTOPRAZOLE
  5. ATENOLOL. [Concomitant]
     Active Substance: ATENOLOL
  6. DIBASE [Concomitant]
     Active Substance: CHOLECALCIFEROL
     Dosage: 25.000 IU (2,5 ML) VIAL, 1 VIAL/15 DAYS
  7. TICAGRELOR. [Suspect]
     Active Substance: TICAGRELOR
     Dosage: 90.0MG UNKNOWN
     Route: 048
     Dates: start: 20180329, end: 20180613
  8. PREDNISONE. [Concomitant]
     Active Substance: PREDNISONE
     Dosage: 1 CAPSULE ALTERNATE WITH 1 + ??? CAPSULE UNTIL 24?JUNE FROM 25?JUNE 1 CAPSULE/DAY
  9. ACETYLSALICYLIC ACID [Concomitant]
     Active Substance: ASPIRIN

REACTIONS (23)
  - Colitis ischaemic [Unknown]
  - Large intestinal ulcer haemorrhage [Unknown]
  - Klebsiella test positive [Unknown]
  - Gastric ulcer [Unknown]
  - Leukocytosis [Unknown]
  - Thrombocytosis [Unknown]
  - Uterine leiomyoma [Unknown]
  - Drug hypersensitivity [Unknown]
  - Escherichia test positive [Unknown]
  - Eyelid oedema [Unknown]
  - Thrombotic microangiopathy [Recovered/Resolved]
  - Acute kidney injury [Recovered/Resolved]
  - Vocal cord paralysis [Unknown]
  - Hypoalbuminaemia [Unknown]
  - Pneumonia staphylococcal [Unknown]
  - Anaemia [Unknown]
  - Adrenal insufficiency [Unknown]
  - Acute pulmonary oedema [Unknown]
  - Pneumonia [Unknown]
  - Hypertension [Unknown]
  - Adrenal haemorrhage [Recovered/Resolved]
  - Uterine enlargement [Unknown]
  - Face oedema [Unknown]

NARRATIVE: CASE EVENT DATE: 20180329
